FAERS Safety Report 7028215-7 (Version None)
Quarter: 2010Q4

REPORT INFORMATION
  Report Type: 
  Country: None (occurrence: None)
  Receive Date: 20101005
  Receipt Date: 20100927
  Transmission Date: 20110411
  Serious: Yes (Death, Life-Threatening, Other)
  Sender: FDA-Public Use
  Company Number: US-JNJFOC-20100705444

PATIENT
  Sex: Female
  Weight: 70.8 kg

DRUGS (7)
  1. DOXIL [Suspect]
     Indication: ACUTE LYMPHOCYTIC LEUKAEMIA
     Dosage: DAY 1
     Route: 042
  2. VELCADE [Suspect]
     Indication: ACUTE LYMPHOCYTIC LEUKAEMIA
     Dosage: DAY 1, 4, 8 AND 11
     Route: 042
  3. VINCRISTINE [Suspect]
     Indication: ACUTE LYMPHOCYTIC LEUKAEMIA
     Dosage: DAY 1,8, 15 AND 22
     Route: 042
  4. PEG-ASPARAGINASE [Suspect]
     Indication: ACUTE LYMPHOCYTIC LEUKAEMIA
     Dosage: DAY 2, 8, 15 AND 22
     Route: 030
  5. ARA-C [Suspect]
     Indication: ACUTE LYMPHOCYTIC LEUKAEMIA
     Dosage: DAY 1,8, 15 AND 22
     Route: 065
  6. DECADRON [Suspect]
     Indication: ACUTE LYMPHOCYTIC LEUKAEMIA
     Dosage: DAY 1
     Route: 042
  7. METHOTREXATE [Suspect]
     Indication: ACUTE LYMPHOCYTIC LEUKAEMIA
     Dosage: DAY 1
     Route: 065

REACTIONS (27)
  - ABDOMINAL PAIN [None]
  - ANAPHYLACTIC REACTION [None]
  - AORTIC THROMBOSIS [None]
  - ARRHYTHMIA [None]
  - BACTERAEMIA [None]
  - C-REACTIVE PROTEIN INCREASED [None]
  - CHILLS [None]
  - DYSPNOEA [None]
  - HEPATIC FAILURE [None]
  - HEPATIC INFARCTION [None]
  - HYPERAMMONAEMIA [None]
  - HYPERPYREXIA [None]
  - HYPOPHOSPHATAEMIA [None]
  - HYPOTENSION [None]
  - INFUSION RELATED REACTION [None]
  - LOSS OF CONSCIOUSNESS [None]
  - LUNG CONSOLIDATION [None]
  - MALAISE [None]
  - MUCORMYCOSIS [None]
  - MYOSITIS [None]
  - NEUTROPENIA [None]
  - PAIN [None]
  - SHOCK [None]
  - SPLENIC INFARCTION [None]
  - TRANSAMINASES INCREASED [None]
  - VENTRICULAR TACHYCARDIA [None]
  - ZYGOMYCOSIS [None]
